FAERS Safety Report 4378848-1 (Version None)
Quarter: 2004Q2

REPORT INFORMATION
  Report Type: 
  Country: None (occurrence: None)
  Receive Date: 20040609
  Receipt Date: 20040519
  Transmission Date: 20050107
  Serious: Yes (Hospitalization)
  Sender: FDA-Public Use
  Company Number: F04200400157

PATIENT
  Age: 59 Year

DRUGS (6)
  1. ELOXATIN [Suspect]
     Indication: PANCREATIC CARCINOMA
     Dosage: 130 MG/M2 OTHER (CUMULATIVE DOSE : 130 MG/M2), INTRAVENOUS DRIP
     Route: 041
     Dates: start: 20040331, end: 20040331
  2. GEMZAR [Suspect]
     Indication: PANCREATIC CARCINOMA
     Dosage: 1000 MG/M2 OTHER (CUMULATIVE DOSE : 2000 MG/M2) INTRAVENOUS DRIP
     Route: 041
     Dates: start: 20040331, end: 20040331
  3. KEVATRIL (GRANISETRON HYDROCHLORIDE) [Concomitant]
  4. URBASON (METHYLPREDNISOLONE) [Concomitant]
  5. TAVEGIL (CLEMASTINE) [Concomitant]
  6. FERRLECIT [Concomitant]

REACTIONS (1)
  - ENTEROCOLITIS HAEMORRHAGIC [None]
